FAERS Safety Report 5170104-7 (Version None)
Quarter: 2006Q4

REPORT INFORMATION
  Report Type: 
  Country: None (occurrence: None)
  Receive Date: 20061212
  Receipt Date: 20051026
  Transmission Date: 20070319
  Serious: Yes (Hospitalization)
  Sender: FDA-Public Use
  Company Number: CH-MERCK-0510USA09249

PATIENT
  Age: 20 Year
  Sex: Female

DRUGS (1)
  1. STROMECTOL [Suspect]
     Indication: FILARIASIS
     Route: 048
     Dates: start: 20010123, end: 20010123

REACTIONS (3)
  - ABDOMINAL PAIN [None]
  - DRUG INEFFECTIVE [None]
  - HEPATITIS [None]
